FAERS Safety Report 16541785 (Version 15)
Quarter: 2020Q3

REPORT INFORMATION
  Report Type: Report from Study
  Country: US (occurrence: US)
  Receive Date: 20190708
  Receipt Date: 20200820
  Transmission Date: 20201102
  Serious: Yes (Death, Hospitalization, Other)
  Sender: FDA-Public Use
  Company Number: US-ACTELION-A-NJ2018-180352

PATIENT
  Age: 73 Year
  Sex: Female
  Weight: 50.79 kg

DRUGS (10)
  1. LEVOTHYROXINE. [Concomitant]
     Active Substance: LEVOTHYROXINE
     Dosage: 25 MCG, QD
     Route: 048
     Dates: start: 20180410, end: 20190910
  2. SULFAMETHOXAZOLE AND TRIMETHOPRIM [Concomitant]
     Active Substance: SULFAMETHOXAZOLE\TRIMETHOPRIM
     Dosage: UNK
     Dates: start: 20190312, end: 20190404
  3. ADCIRCA [Concomitant]
     Active Substance: TADALAFIL
  4. ELIQUIS [Concomitant]
     Active Substance: APIXABAN
  5. PREDNISONE. [Concomitant]
     Active Substance: PREDNISONE
     Dosage: 10 MG
     Route: 048
     Dates: start: 20190312, end: 20190923
  6. OPSUMIT [Suspect]
     Active Substance: MACITENTAN
     Indication: PULMONARY HYPERTENSION
     Dosage: 10 MG, QD
     Route: 048
     Dates: start: 20171221, end: 20200306
  7. GABAPENTIN. [Concomitant]
     Active Substance: GABAPENTIN
     Dosage: 300 MG, QD
     Route: 048
     Dates: start: 20180725, end: 20181002
  8. OPSUMIT [Suspect]
     Active Substance: MACITENTAN
     Dosage: 5 MG
     Route: 048
     Dates: end: 20200620
  9. REMODULIN [Concomitant]
     Active Substance: TREPROSTINIL
  10. SOTALOL. [Concomitant]
     Active Substance: SOTALOL
     Dosage: 80 MG, QD
     Route: 048

REACTIONS (28)
  - Vision blurred [Unknown]
  - Migraine [Not Recovered/Not Resolved]
  - Dizziness [Not Recovered/Not Resolved]
  - Pain in jaw [Not Recovered/Not Resolved]
  - Death [Fatal]
  - Heart rate irregular [Recovered/Resolved]
  - Infection [Recovered/Resolved]
  - Candida infection [Unknown]
  - Weight decreased [Unknown]
  - Transfusion [Unknown]
  - Nasal congestion [Not Recovered/Not Resolved]
  - Skin infection [Unknown]
  - Atrial fibrillation [Not Recovered/Not Resolved]
  - Anaemia macrocytic [Recovering/Resolving]
  - Asthenia [Not Recovered/Not Resolved]
  - Fatigue [Not Recovered/Not Resolved]
  - Malaise [Unknown]
  - Clostridium difficile infection [Unknown]
  - Peripheral swelling [Not Recovered/Not Resolved]
  - Internal haemorrhage [Not Recovered/Not Resolved]
  - Diarrhoea [Not Recovered/Not Resolved]
  - Haemorrhage [Recovering/Resolving]
  - Infusion site haemorrhage [Unknown]
  - Catheter site infection [Recovered/Resolved]
  - Fluid retention [Not Recovered/Not Resolved]
  - Condition aggravated [Recovering/Resolving]
  - Pain in extremity [Not Recovered/Not Resolved]
  - Dyspnoea [Not Recovered/Not Resolved]

NARRATIVE: CASE EVENT DATE: 20190811
